FAERS Safety Report 16752455 (Version 1)
Quarter: 2019Q3

REPORT INFORMATION
  Report Type: Spontaneous
  Country: CA (occurrence: CA)
  Receive Date: 20190828
  Receipt Date: 20190828
  Transmission Date: 20191005
  Serious: Yes (Hospitalization, Other)
  Sender: FDA-Public Use
  Company Number: CA-PFIZER INC-2019363464

PATIENT
  Sex: Female

DRUGS (3)
  1. BUPIVACAINE HCL [Suspect]
     Active Substance: BUPIVACAINE HYDROCHLORIDE
     Indication: CANCER PAIN
     Dosage: 11 MG, 1X/DAY
     Route: 037
  2. HYDROMORPHONE HYDROCHLORIDE. [Suspect]
     Active Substance: HYDROMORPHONE HYDROCHLORIDE
     Indication: CANCER PAIN
     Dosage: 1.6 MG, 1X/DAY
     Route: 037
  3. BACLOFEN. [Suspect]
     Active Substance: BACLOFEN
     Indication: CANCER PAIN
     Dosage: 30 UG, 1X/DAY
     Route: 037

REACTIONS (3)
  - Muscle spasticity [Not Recovered/Not Resolved]
  - Seizure [Not Recovered/Not Resolved]
  - Withdrawal syndrome [Not Recovered/Not Resolved]
